FAERS Safety Report 4633520-5 (Version None)
Quarter: 2005Q2

REPORT INFORMATION
  Report Type: 
  Country: None (occurrence: None)
  Receive Date: 20050331
  Receipt Date: 20041115
  Transmission Date: 20051028
  Serious: Yes (Other)
  Sender: FDA-Public Use
  Company Number: 200415521BCC

PATIENT
  Age: 81 Year
  Sex: Female
  Weight: 77.1115 kg

DRUGS (6)
  1. ALEVE [Suspect]
     Indication: ARTHRALGIA
     Dosage: 220 MG, QD, ORAL
     Route: 048
     Dates: start: 20041112, end: 20041114
  2. LIPITOR [Concomitant]
  3. CELEXA [Concomitant]
  4. PROTONIX [Concomitant]
  5. BISOPROLOL FUMARATE [Concomitant]
  6. CLARITIN [Concomitant]

REACTIONS (1)
  - HAEMATOCHEZIA [None]
